FAERS Safety Report 6186480-2 (Version None)
Quarter: 2009Q2

REPORT INFORMATION
  Report Type: 
  Country: None (occurrence: None)
  Receive Date: 20090507
  Receipt Date: 20090507
  Transmission Date: 20091009
  Serious: Yes (Other)
  Sender: FDA-Public Use
  Company Number: None

PATIENT
  Age: 31 Year
  Sex: Female
  Weight: 77.1115 kg

DRUGS (1)
  1. DORYX [Suspect]
     Indication: ROSACEA
     Dosage: 150MG ONE TABLET/ONCE DA PO
     Route: 048
     Dates: start: 20090419, end: 20090422

REACTIONS (1)
  - CONVULSION [None]
